FAERS Safety Report 15084810 (Version 1)
Quarter: 2018Q2

REPORT INFORMATION
  Report Type: Spontaneous
  Country: FR (occurrence: FR)
  Receive Date: 20180628
  Receipt Date: 20180628
  Transmission Date: 20180711
  Serious: Yes (Life-Threatening, Other)
  Sender: FDA-Public Use
  Company Number: FR-ABBVIE-18K-056-2403594-00

PATIENT
  Age: 62 Year
  Sex: Male

DRUGS (2)
  1. PENTASA [Concomitant]
     Active Substance: MESALAMINE
     Indication: PRODUCT USED FOR UNKNOWN INDICATION
  2. HUMIRA [Suspect]
     Active Substance: ADALIMUMAB
     Indication: COLITIS ULCERATIVE
     Dosage: USUAL POSOLOGY
     Route: 058
     Dates: start: 201606

REACTIONS (2)
  - Surgery [Unknown]
  - Suicide attempt [Unknown]

NARRATIVE: CASE EVENT DATE: 201805
